FAERS Safety Report 21846118 (Version 1)
Quarter: 2023Q1

REPORT INFORMATION
  Report Type: Report from Study
  Country: US (occurrence: US)
  Receive Date: 20230111
  Receipt Date: 20230111
  Transmission Date: 20230417
  Serious: No
  Sender: FDA-Public Use
  Company Number: US-ABBVIE-4228801

PATIENT
  Age: 36 Year
  Sex: Female

DRUGS (3)
  1. SKYRIZI [Suspect]
     Active Substance: RISANKIZUMAB-RZAA
     Indication: Psoriasis
     Dosage: FORM STRENGTH 150 MILLIGRAM WEEK 0
     Route: 058
     Dates: start: 20220502, end: 20220502
  2. SKYRIZI [Suspect]
     Active Substance: RISANKIZUMAB-RZAA
     Dosage: FORM STRENGTH 150 MILLIGRAM?WEEK 4
     Route: 058
     Dates: start: 20220530, end: 20220530
  3. SKYRIZI [Suspect]
     Active Substance: RISANKIZUMAB-RZAA
     Dosage: FORM STRENGTH 150 MILLIGRAM
     Route: 058
     Dates: start: 20221129

REACTIONS (4)
  - General physical condition abnormal [Recovering/Resolving]
  - Respiratory tract infection [Recovered/Resolved]
  - Erythema [Unknown]
  - Pruritus [Unknown]

NARRATIVE: CASE EVENT DATE: 20221101
